APPROVED DRUG PRODUCT: THEOPHYLLINE
Active Ingredient: THEOPHYLLINE
Strength: 300MG
Dosage Form/Route: CAPSULE, EXTENDED RELEASE;ORAL
Application: A040052 | Product #004
Applicant: INWOOD LABORATORIES INC SUB FOREST LABORATORIES INC
Approved: Feb 14, 1994 | RLD: No | RS: No | Type: DISCN